FAERS Safety Report 19423385 (Version 2)
Quarter: 2022Q3

REPORT INFORMATION
  Report Type: Spontaneous
  Country: US (occurrence: US)
  Receive Date: 20210616
  Receipt Date: 20220714
  Transmission Date: 20221026
  Serious: No
  Sender: FDA-Public Use
  Company Number: US-SUN PHARMACEUTICAL INDUSTRIES LTD-2021R1-292430

PATIENT
  Age: 82 Year
  Sex: Male

DRUGS (1)
  1. YONSA [Suspect]
     Active Substance: ABIRATERONE ACETATE
     Indication: Prostate cancer
     Dosage: 500 MILLIGRAM, QD
     Route: 048
     Dates: start: 20210330

REACTIONS (1)
  - Blood pressure fluctuation [Unknown]

NARRATIVE: CASE EVENT DATE: 20210401
